FAERS Safety Report 8246811-6 (Version None)
Quarter: 2012Q1

REPORT INFORMATION
  Report Type: 
  Country: None (occurrence: None)
  Receive Date: 20120330
  Receipt Date: 20120322
  Transmission Date: 20120608
  Serious: Yes (Death)
  Sender: FDA-Public Use
  Company Number: US-GENZYME-POMP-1002126

PATIENT

DRUGS (6)
  1. RECOMBINANT HUMAN ACID ALPHA-GLUCOSIDASE [Concomitant]
     Indication: IMMUNOMODULATORY THERAPY
     Dosage: UNK
  2. MYOZYME [Suspect]
     Indication: GLYCOGEN STORAGE DISEASE TYPE II
     Dosage: 5 MG/KG, Q2W
     Route: 042
  3. CYCLOPHOSPHAMIDE [Concomitant]
     Indication: IMMUNOMODULATORY THERAPY
  4. MESNA [Concomitant]
     Indication: HAEMATURIA
     Dosage: UNK
  5. IMMUNE GLOBULIN (HUMAN) [Concomitant]
     Indication: IMMUNOMODULATORY THERAPY
     Dosage: UNK
     Route: 042
  6. RITUXIMAB [Concomitant]
     Indication: IMMUNOMODULATORY THERAPY
     Dosage: UNK

REACTIONS (1)
  - DRUG INEFFECTIVE [None]
